FAERS Safety Report 7856360-2 (Version None)
Quarter: 2011Q4

REPORT INFORMATION
  Report Type: 
  Country: None (occurrence: None)
  Receive Date: 20111026
  Receipt Date: 20111018
  Transmission Date: 20120403
  Serious: Yes (Death)
  Sender: FDA-Public Use
  Company Number: VE-AMGEN-VENSP2011054195

PATIENT
  Age: 68 Year
  Sex: Female

DRUGS (6)
  1. BRISTAFLAM [Concomitant]
     Indication: ARTHRITIS
     Dosage: 100 MG, 1X/DAY
     Route: 048
     Dates: end: 20110101
  2. ENBREL [Suspect]
     Indication: PRODUCT USED FOR UNKNOWN INDICATION
     Dosage: 50 MG, 3X/WEEK
     Route: 058
     Dates: start: 20090811, end: 20110815
  3. FOLIC ACID [Concomitant]
     Indication: ARTHRITIS
     Dosage: 10 MG, 1X/DAY
     Route: 048
     Dates: end: 20110101
  4. PLAQUINOL TAB [Concomitant]
     Indication: ARTHRITIS
     Dosage: 200 MG, 3X/WEEK
     Route: 048
     Dates: end: 20110101
  5. VITAMIN D [Concomitant]
     Indication: ARTHRITIS
     Dosage: 400 MG, 2X/DAY
     Route: 048
     Dates: end: 20110101
  6. MEDROL [Concomitant]
     Indication: ARTHRITIS
     Dosage: 8 MG, ALTERNATE DAY
     Route: 048
     Dates: end: 20110101

REACTIONS (1)
  - DENGUE FEVER [None]
